FAERS Safety Report 8778663 (Version 1)
Quarter: 2012Q4

REPORT INFORMATION
  Report Type: 
  Country: DE (occurrence: FR)
  Receive Date: 20120914
  Receipt Date: 20120914
  Transmission Date: 20130627
  Serious: Yes (Hospitalization)
  Sender: FDA-Public Use
  Company Number: FR-BRISTOL-MYERS SQUIBB COMPANY-16936767

PATIENT
  Age: 76 Year
  Sex: Male

DRUGS (12)
  1. GLUCOPHAGE TABS 1000 MG [Suspect]
     Route: 048
     Dates: start: 20090511
  2. PLAVIX [Suspect]
     Dates: start: 20120522
  3. OLANZAPINE [Suspect]
     Dosage: Olanzapine mylan 7.5mg tablet
     Route: 048
     Dates: start: 20081226
  4. VENLAFAXINE HYDROCHLORIDE [Suspect]
     Dosage: Venlafaxine arrow capsule 75mg 1df: 2
     Route: 048
     Dates: start: 20120706
  5. LAMOTRIGINE [Suspect]
     Dosage: Lamotrigine arrow tablet  100mg 1df: 1.5
     Route: 048
     Dates: start: 20120706
  6. NORSET [Suspect]
     Dosage: Tablet 15mg.
     Route: 048
     Dates: start: 20120706
  7. IMOVANE [Suspect]
     Dosage: Tablet 7.5mg
     Route: 048
     Dates: start: 20090522
  8. LEPTICUR [Suspect]
     Dosage: Lepticur park 5mg tablet 1df: 3
     Route: 048
     Dates: start: 20090522
  9. MECIR [Suspect]
     Dosage: Mecir LP tablet 0.4mg
     Route: 048
     Dates: start: 20120522
  10. SPASFON-LYOC [Suspect]
     Dosage: 1df: 3, Seresta 80mg tab
     Route: 048
  11. SERESTA [Suspect]
     Dosage: Seresta 80mg tabs is the strength
     Route: 048
  12. HEMI-DAONIL [Suspect]
     Dosage: Tablet 2.5mg
     Route: 048

REACTIONS (4)
  - Gait disturbance [Recovered/Resolved]
  - Major depression [None]
  - Balance disorder [None]
  - Cerebral microangiopathy [None]
